FAERS Safety Report 17785697 (Version 3)
Quarter: 2020Q3

REPORT INFORMATION
  Report Type: Spontaneous
  Country: US (occurrence: US)
  Receive Date: 20200514
  Receipt Date: 20200915
  Transmission Date: 20201102
  Serious: Yes (Other)
  Sender: FDA-Public Use
  Company Number: US-GILEAD-2020-0467060

PATIENT
  Age: 53 Year
  Sex: Male
  Weight: 55.33 kg

DRUGS (22)
  1. ALENDRONATE [Concomitant]
     Active Substance: ALENDRONATE SODIUM
  2. VITAMIN D 2000 [Concomitant]
     Active Substance: VITAMIN D NOS
  3. EVOTAZ [Concomitant]
     Active Substance: ATAZANAVIR SULFATE\COBICISTAT
  4. VIREAD [Suspect]
     Active Substance: TENOFOVIR DISOPROXIL FUMARATE
     Indication: HIV INFECTION
     Dosage: UNK
     Route: 048
     Dates: start: 2010, end: 201204
  5. TRAZODONE [Concomitant]
     Active Substance: TRAZODONE HYDROCHLORIDE
  6. REYATAZ [Concomitant]
     Active Substance: ATAZANAVIR SULFATE
  7. ACYCLOVIR ABBOTT VIAL [Concomitant]
  8. SIMVASTATIN. [Concomitant]
     Active Substance: SIMVASTATIN
  9. FLUOXETIN [Concomitant]
     Active Substance: FLUOXETINE HYDROCHLORIDE
  10. PRAVASTATIN. [Concomitant]
     Active Substance: PRAVASTATIN
  11. ALPRAZOLAM. [Concomitant]
     Active Substance: ALPRAZOLAM
  12. LUNESTA [Concomitant]
     Active Substance: ESZOPICLONE
  13. ZETIA [Concomitant]
     Active Substance: EZETIMIBE
  14. NORVIR [Concomitant]
     Active Substance: RITONAVIR
  15. ROSUVASTATIN. [Concomitant]
     Active Substance: ROSUVASTATIN
  16. ZOLPIDEM [Concomitant]
     Active Substance: ZOLPIDEM TARTRATE
  17. CIALIS [Concomitant]
     Active Substance: TADALAFIL
  18. GABAPENTIN. [Concomitant]
     Active Substance: GABAPENTIN
  19. FERROUS SULFATE. [Concomitant]
     Active Substance: FERROUS SULFATE
  20. EPZICOM [Concomitant]
     Active Substance: ABACAVIR SULFATE\LAMIVUDINE
  21. TRIUMEQ [Concomitant]
     Active Substance: ABACAVIR SULFATE\DOLUTEGRAVIR SODIUM\LAMIVUDINE
  22. NAPROXEN. [Concomitant]
     Active Substance: NAPROXEN

REACTIONS (6)
  - Renal failure [Not Recovered/Not Resolved]
  - Bone density decreased [Unknown]
  - Economic problem [Unknown]
  - Intervertebral disc degeneration [Not Recovered/Not Resolved]
  - Chronic kidney disease [Not Recovered/Not Resolved]
  - Osteoporosis [Not Recovered/Not Resolved]

NARRATIVE: CASE EVENT DATE: 20141229
